FAERS Safety Report 13977745 (Version 1)
Quarter: 2017Q3

REPORT INFORMATION
  Report Type: Spontaneous
  Country: US (occurrence: US)
  Receive Date: 20170915
  Receipt Date: 20170915
  Transmission Date: 20171128
  Serious: Yes (Disabling, Other)
  Sender: FDA-Public Use
  Company Number: None

PATIENT
  Age: 50 Year
  Sex: Female
  Weight: 69.75 kg

DRUGS (3)
  1. GADOLINIUM [Suspect]
     Active Substance: GADOLINIUM
     Indication: SCAN WITH CONTRAST
     Dosage: INTRAVENOUS (NOT OTHERWISE SPECIFIED)
     Route: 042
     Dates: start: 20170710
  2. FISH OIL [Concomitant]
     Active Substance: FISH OIL
  3. MULTI VITAMIN [Concomitant]
     Active Substance: VITAMINS

REACTIONS (13)
  - Serum sickness [None]
  - Pyrexia [None]
  - Dysphagia [None]
  - Gait disturbance [None]
  - Vision blurred [None]
  - Myalgia [None]
  - Headache [None]
  - Neuralgia [None]
  - Contrast media allergy [None]
  - Fatigue [None]
  - Skin discolouration [None]
  - Paraesthesia [None]
  - Bone pain [None]

NARRATIVE: CASE EVENT DATE: 20170710
